FAERS Safety Report 6969988-9 (Version None)
Quarter: 2010Q3

REPORT INFORMATION
  Report Type: 
  Country: None (occurrence: None)
  Receive Date: 20100823
  Receipt Date: 20100707
  Transmission Date: 20110219
  Serious: No
  Sender: FDA-Public Use
  Company Number: 012200

PATIENT
  Sex: Female
  Weight: 80.1 kg

DRUGS (5)
  1. CIMZIA [Suspect]
     Indication: CROHN'S DISEASE
     Dosage: (SUBCUTANEOUS)
     Route: 058
     Dates: start: 20100101, end: 20100501
  2. ABILIFY [Concomitant]
  3. PAXIL [Concomitant]
  4. TRAZODONE HCL [Concomitant]
  5. BALSALAZIDE [Concomitant]

REACTIONS (4)
  - DYSPNOEA [None]
  - FATIGUE [None]
  - RASH [None]
  - SWELLING FACE [None]
